FAERS Safety Report 9110792 (Version 2)
Quarter: 2014Q1

REPORT INFORMATION
  Report Type: Spontaneous
  Country: US (occurrence: US)
  Receive Date: 20130219
  Receipt Date: 20140213
  Transmission Date: 20141002
  Serious: No
  Sender: FDA-Public Use
  Company Number: US-BRISTOL-MYERS SQUIBB COMPANY-17202342

PATIENT
  Age: 40 Year
  Sex: Female
  Weight: 113.38 kg

DRUGS (7)
  1. ORENCIA [Suspect]
     Indication: RHEUMATOID ARTHRITIS
     Dosage: START:JAN2013, INTERR FROM MAY12-NOV12:LAST INF-5AUG13
     Route: 042
  2. AMLODIPINE [Concomitant]
  3. CLARITIN [Concomitant]
  4. VENTOLIN INHALER [Concomitant]
  5. QVAR [Concomitant]
  6. MULTIVITAMIN [Concomitant]
  7. CALCIUM [Concomitant]

REACTIONS (7)
  - Headache [Unknown]
  - Nausea [Unknown]
  - Fatigue [Unknown]
  - Chest discomfort [Unknown]
  - Raynaud^s phenomenon [Unknown]
  - Local swelling [Unknown]
  - Lung infiltration [Unknown]
